FAERS Safety Report 4263612-4 (Version None)
Quarter: 2004Q1

REPORT INFORMATION
  Report Type: 
  Country: None (occurrence: None)
  Receive Date: 20040102
  Receipt Date: 20031223
  Transmission Date: 20041129
  Serious: Yes (Hospitalization, Other)
  Sender: FDA-Public Use
  Company Number: S03-USA-00285-01

PATIENT
  Age: 32 Year
  Sex: Female
  Weight: 73.0291 kg

DRUGS (4)
  1. LEXAPRO [Suspect]
     Indication: DEPRESSION
     Dosage: 10 MG QD PO
     Route: 048
     Dates: start: 20021020, end: 20021227
  2. LEXAPRO [Suspect]
     Indication: DEPRESSION
     Dosage: 10 MG QD PO
     Route: 048
     Dates: start: 20030401
  3. ALDOMET [Concomitant]
  4. NESTABS [Concomitant]

REACTIONS (11)
  - CAESAREAN SECTION [None]
  - COMPLICATIONS OF MATERNAL EXPOSURE TO THERAPEUTIC DRUGS [None]
  - CONDITION AGGRAVATED [None]
  - DRUG INEFFECTIVE [None]
  - HYPERTENSION [None]
  - HYPOAESTHESIA [None]
  - MATERNAL DRUGS AFFECTING FOETUS [None]
  - PRE-ECLAMPSIA [None]
  - PREGNANCY [None]
  - PREMATURE BABY [None]
  - PROTEIN URINE PRESENT [None]
